FAERS Safety Report 6449488-5 (Version None)
Quarter: 2009Q4

REPORT INFORMATION
  Report Type: 
  Country: None (occurrence: None)
  Receive Date: 20091120
  Receipt Date: 20091109
  Transmission Date: 20100525
  Serious: Yes (Death)
  Sender: FDA-Public Use
  Company Number: DE-ELI_LILLY_AND_COMPANY-DE200911002400

PATIENT
  Age: 68 Year
  Sex: Female
  Weight: 63.5 kg

DRUGS (11)
  1. OLANZAPINE [Suspect]
     Indication: SCHIZOPHRENIA, PARANOID TYPE
     Dosage: 15 MG, DAY 1-4.
  2. OLANZAPINE [Suspect]
     Dosage: 20 MG, DAY 5, 6 AND 7.
  3. LORAZEPAM [Concomitant]
     Indication: SCHIZOPHRENIA, PARANOID TYPE
     Dosage: 1.5 MG, FIDAY 1 AND 2
  4. LORAZEPAM [Concomitant]
     Dosage: 4 MG, DAY 3
  5. LORAZEPAM [Concomitant]
     Dosage: 2 MG, DAY 4 AND 5
  6. LORAZEPAM [Concomitant]
     Dosage: 5 MG, DAY 6
  7. LORAZEPAM [Concomitant]
     Dosage: 6 MG, DAY 7
  8. HALOPERIDOL [Concomitant]
     Indication: SCHIZOPHRENIA, PARANOID TYPE
     Dosage: 5 MG, DAY 1
  9. HALOPERIDOL [Concomitant]
     Dosage: 9 MG, DAY 3
  10. HALOPERIDOL [Concomitant]
     Dosage: 13 MG, DAY 4
  11. HALOPERIDOL [Concomitant]
     Dosage: 15 MG, DAY 5

REACTIONS (1)
  - PULMONARY EMBOLISM [None]
